FAERS Safety Report 6947628-2 (Version None)
Quarter: 2010Q3

REPORT INFORMATION
  Report Type: 
  Country: None (occurrence: None)
  Receive Date: 20100828
  Receipt Date: 20091009
  Transmission Date: 20110219
  Serious: No
  Sender: FDA-Public Use
  Company Number: US-ABBOTT-09P-163-0599607-00

PATIENT
  Sex: Female
  Weight: 72.64 kg

DRUGS (5)
  1. NIASPAN [Suspect]
     Indication: BLOOD CHOLESTEROL INCREASED
     Dates: start: 20090901, end: 20090901
  2. NIASPAN [Suspect]
     Indication: BLOOD TRIGLYCERIDES INCREASED
     Dates: start: 20090922
  3. TRICOR [Concomitant]
     Indication: BLOOD CHOLESTEROL INCREASED
     Dates: start: 20080101
  4. TRICOR [Concomitant]
     Indication: BLOOD TRIGLYCERIDES INCREASED
  5. OMEGA 3 FATTY ACID [Concomitant]
     Indication: PRODUCT USED FOR UNKNOWN INDICATION

REACTIONS (4)
  - FLUSHING [None]
  - INCORRECT DRUG ADMINISTRATION DURATION [None]
  - PRURITUS [None]
  - RASH MACULAR [None]
